FAERS Safety Report 7493807-8 (Version None)
Quarter: 2011Q2

REPORT INFORMATION
  Report Type: 
  Country: None (occurrence: None)
  Receive Date: 20110520
  Receipt Date: 20110506
  Transmission Date: 20111010
  Serious: Yes (Other)
  Sender: FDA-Public Use
  Company Number: US-CELGENEUS-163-21880-10101960

PATIENT
  Sex: Male

DRUGS (12)
  1. REVLIMID [Suspect]
     Indication: MULTIPLE MYELOMA
     Dosage: 25 MILLIGRAM
     Route: 048
     Dates: start: 20091101, end: 20100101
  2. FENTANYL [Concomitant]
     Dosage: 25 MICROGRAM
     Route: 065
     Dates: start: 20110310
  3. REVLIMID [Suspect]
     Dosage: 10 MILLIGRAM
     Route: 048
     Dates: start: 20110101
  4. DEXILANT [Concomitant]
     Dosage: 60 MILLIGRAM
     Route: 065
  5. MAG-OX [Concomitant]
     Dosage: 400 MILLIGRAM
     Route: 065
  6. REVLIMID [Suspect]
     Dosage: 15MG-25MG
     Route: 048
     Dates: start: 20100501, end: 20100901
  7. REVLIMID [Suspect]
     Dosage: 15 MILLIGRAM
     Route: 048
     Dates: start: 20100901, end: 20110101
  8. ACYCLOVIR [Concomitant]
     Dosage: 200 MILLIGRAM
     Route: 065
  9. ZOMETA [Concomitant]
     Dosage: 4MG/5ML
     Route: 050
  10. IMODIUM [Concomitant]
     Dosage: 2 MILLIGRAM
     Route: 065
  11. FENTANYL [Concomitant]
     Dosage: 25 MICROGRAM
     Route: 065
     Dates: start: 20110309
  12. BACTRIM DS [Concomitant]
     Dosage: 400-80MG
     Route: 065

REACTIONS (4)
  - HAEMORRHAGE [None]
  - CONTUSION [None]
  - WHITE BLOOD CELL COUNT DECREASED [None]
  - PLATELET COUNT DECREASED [None]
